FAERS Safety Report 6630747-8 (Version None)
Quarter: 2010Q1

REPORT INFORMATION
  Report Type: 
  Country: None (occurrence: None)
  Receive Date: 20100311
  Receipt Date: 20100305
  Transmission Date: 20100710
  Serious: Yes (Other)
  Sender: FDA-Public Use
  Company Number: US-TYCO HEALTHCARE/MALLINCKRODT-T200902347

PATIENT
  Sex: Female

DRUGS (5)
  1. OPTIMARK [Suspect]
     Dosage: UNK
  2. MAGNEVIST [Suspect]
     Dosage: UNK
  3. OMNISCAN [Suspect]
     Dosage: UNK
  4. MULTIHANCE [Suspect]
     Dosage: UNK
  5. PROHANCE [Suspect]
     Dosage: UNK

REACTIONS (1)
  - NEPHROGENIC SYSTEMIC FIBROSIS [None]
